FAERS Safety Report 9167136 (Version 1)
Quarter: 2013Q1

REPORT INFORMATION
  Report Type: Spontaneous
  Country: DK (occurrence: None)
  Receive Date: 20130304
  Receipt Date: 20130304
  Transmission Date: 20140127
  Serious: Yes (Other)
  Sender: FDA-Public Use
  Company Number: 1612941

PATIENT
  Age: 44 Year
  Sex: Female

DRUGS (10)
  1. GEMCITABINE HYDROCHLORIDE [Suspect]
     Indication: PRODUCT USED FOR UNKNOWN INDICATION
  2. VINORELBINE TARTRATE [Suspect]
     Indication: PRODUCT USED FOR UNKNOWN INDICATION
  3. PACLITAXEL [Suspect]
     Indication: PRODUCT USED FOR UNKNOWN INDICATION
  4. TRASTUZUMAB [Suspect]
     Indication: PRODUCT USED FOR UNKNOWN INDICATION
     Dosage: 4TH AND 5TH LINE TREATMENT WITH HERCEPTIN WITH GEMCITABINE AND CURRENTLY ERIBULIN, RESPECTIVELY
  5. TRASTUZUMAB [Suspect]
     Indication: PRODUCT USED FOR UNKNOWN INDICATION
     Dosage: 4TH AND 5TH LINE TREATMENT WITH HERCEPTIN WITH GEMCITABINE AND CURRENTLY ERIBULIN, RESPECTIVELY
  6. CAPECITABINE [Suspect]
     Indication: PRODUCT USED FOR UNKNOWN INDICATION
     Dosage: THIRD LINE TREATMENT WITH LAPATINIB AND ORAL CAPECITABINE IS GIVEN. 10 SERIES.
  7. DOCETAXEL [Suspect]
     Indication: PRODUCT USED FOR UNKNOWN INDICATION
  8. CHEMOTHERAPEUTICS [Suspect]
     Indication: BREAST CANCER
     Dosage: PRIMARILY TREATED WITH INCREASED DOSE OF EPIRUBIN AND COMBINATION THERAPY.
  9. CHEMOTHERAPEUTICS [Suspect]
     Indication: PRODUCT USED FOR UNKNOWN INDICATION
     Dosage: PRIMARILY TREATED WITH INCREASED DOSE OF EPIRUBIN AND COMBINATION THERAPY.
  10. LAPATINIB [Suspect]
     Indication: PRODUCT USED FOR UNKNOWN INDICATION
     Dosage: THIRD LINE TREATMENT WITH LAPATINIB AND ORAL CAPECITABINE IS GIVEN. 10 SERIES.

REACTIONS (3)
  - Haematotoxicity [None]
  - Disease progression [None]
  - Ejection fraction decreased [None]
